FAERS Safety Report 6074771-5 (Version None)
Quarter: 2009Q1

REPORT INFORMATION
  Report Type: 
  Country: None (occurrence: None)
  Receive Date: 20090210
  Receipt Date: 20090210
  Transmission Date: 20090719
  Serious: Yes (Other)
  Sender: FDA-Public Use
  Company Number: None

PATIENT
  Sex: Male

DRUGS (4)
  1. RISPERIDONE [Suspect]
     Indication: AFFECTIVE DISORDER
     Dosage: 2 MG ONCE QAM PO
     Route: 048
     Dates: start: 20090120
  2. RISPERIDONE [Suspect]
     Indication: ATTENTION DEFICIT/HYPERACTIVITY DISORDER
     Dosage: 2 MG ONCE QAM PO
     Route: 048
     Dates: start: 20090120
  3. CONCERTA [Concomitant]
  4. FLUOXETINE [Concomitant]

REACTIONS (3)
  - AGGRESSION [None]
  - ANGER [None]
  - PRODUCT QUALITY ISSUE [None]
